FAERS Safety Report 18269668 (Version 1)
Quarter: 2020Q3

REPORT INFORMATION
  Report Type: Spontaneous
  Country: US (occurrence: US)
  Receive Date: 20200915
  Receipt Date: 20200915
  Transmission Date: 20201103
  Serious: No
  Sender: FDA-Public Use
  Company Number: US-BLUEPRINT MEDICINES CORPORATION-SP-US-2020-000967

PATIENT
  Sex: Female

DRUGS (1)
  1. AYVAKIT [Suspect]
     Active Substance: AVAPRITINIB
     Indication: GASTROINTESTINAL STROMAL TUMOUR
     Route: 048

REACTIONS (10)
  - Eye contusion [Unknown]
  - Skin laceration [Unknown]
  - Memory impairment [Unknown]
  - Toothache [Unknown]
  - Tooth fracture [Unknown]
  - Fall [Recovered/Resolved]
  - Loss of control of legs [Unknown]
  - Aphasia [Unknown]
  - Balance disorder [Unknown]
  - Eye pain [Unknown]
